FAERS Safety Report 21631604 (Version 2)
Quarter: 2022Q4

REPORT INFORMATION
  Report Type: Spontaneous
  Country: CN (occurrence: CN)
  Receive Date: 20221123
  Receipt Date: 20221202
  Transmission Date: 20230113
  Serious: Yes (Hospitalization, Other)
  Sender: FDA-Public Use
  Company Number: None

PATIENT
  Age: 33 Year
  Sex: Male

DRUGS (7)
  1. MYCOPHENOLATE MOFETIL [Suspect]
     Active Substance: MYCOPHENOLATE MOFETIL
     Indication: Immunosuppressant drug therapy
     Dosage: UNK
     Route: 065
     Dates: start: 2017
  2. THYMOCYTE IMMUNE GLOBULIN NOS [Suspect]
     Active Substance: THYMOCYTE IMMUNE GLOBULIN NOS
     Indication: Bone marrow conditioning regimen
     Dosage: 10 MILLIGRAM/KILOGRAM
     Route: 065
     Dates: start: 2017
  3. CYCLOSPORINE [Suspect]
     Active Substance: CYCLOSPORINE
     Indication: Prophylaxis against graft versus host disease
     Dosage: UNK
     Route: 065
     Dates: start: 2017
  4. CYCLOSPORINE [Suspect]
     Active Substance: CYCLOSPORINE
     Indication: Bone marrow conditioning regimen
     Dosage: 50 MILLIGRAM/KILOGRAM
     Route: 065
     Dates: start: 2017
  5. METHOTREXATE [Suspect]
     Active Substance: METHOTREXATE
     Indication: Prophylaxis against graft versus host disease
     Dosage: UNK
     Route: 065
     Dates: start: 2017
  6. ACYCLOVIR [Concomitant]
     Active Substance: ACYCLOVIR
     Indication: Anti-infective therapy
     Dosage: UNK
     Route: 065
     Dates: start: 2017
  7. MESNA [Concomitant]
     Active Substance: MESNA
     Indication: Bone marrow conditioning regimen
     Dosage: 30 MILLIGRAM/KILOGRAM
     Route: 065
     Dates: start: 2017

REACTIONS (3)
  - Hepatic cirrhosis [Recovered/Resolved]
  - Hepatitis E [Recovered/Resolved]
  - Hepatitis viral [Recovered/Resolved]

NARRATIVE: CASE EVENT DATE: 20170101
